FAERS Safety Report 5293736-4 (Version None)
Quarter: 2007Q2

REPORT INFORMATION
  Report Type: 
  Country: None (occurrence: None)
  Receive Date: 20070405
  Receipt Date: 20070323
  Transmission Date: 20071010
  Serious: Yes (Other)
  Sender: FDA-Public Use
  Company Number: 2007RR-06544

PATIENT
  Age: 68 Year
  Sex: Male
  Weight: 78 kg

DRUGS (9)
  1. AMIODARONE (AMIODARONE) UNKNOWN [Suspect]
     Dosage: 200 MG, QD
  2. ACIPIMOX (ACIPIMOX) [Suspect]
     Dosage: 250 MG, BID
  3. ASPIRIN [Suspect]
     Dosage: 75 MG, QD
  4. BISOPROLOL (BISOPROLOL) UNKNOWN [Suspect]
     Dosage: 7.5 MG, QD
  5. DIGOXIN [Suspect]
     Dosage: 0.125 MG, QD
  6. EZETROL (EZETROL) [Suspect]
     Dosage: 10 MG, QD
  7. FUROSEMIDE [Suspect]
     Dosage: SEE IMAGE
  8. LANSOPRAZOLE [Suspect]
     Dosage: 30 MG, QD
  9. PERINDOPRIL ERBUMINE [Suspect]
     Dosage: 2 MG, QD

REACTIONS (12)
  - ATRIAL FIBRILLATION [None]
  - CARDIAC MURMUR [None]
  - DIZZINESS [None]
  - DYSPNOEA [None]
  - FATIGUE [None]
  - OEDEMA PERIPHERAL [None]
  - PARAESTHESIA [None]
  - UNEVALUABLE EVENT [None]
  - VENOUS PRESSURE JUGULAR INCREASED [None]
  - VENTRICULAR ARRHYTHMIA [None]
  - VENTRICULAR DYSFUNCTION [None]
  - VENTRICULAR TACHYCARDIA [None]
